FAERS Safety Report 7630726-8 (Version None)
Quarter: 2011Q3

REPORT INFORMATION
  Report Type: 
  Country: None (occurrence: None)
  Receive Date: 20110722
  Receipt Date: 20110719
  Transmission Date: 20111222
  Serious: Yes (Other)
  Sender: FDA-Public Use
  Company Number: GR-MERCK-1107GRC00004

PATIENT
  Age: 17 Month
  Sex: Female
  Weight: 11 kg

DRUGS (3)
  1. SINGULAIR [Suspect]
     Route: 048
     Dates: start: 20100101, end: 20100101
  2. SINGULAIR [Suspect]
     Indication: BRONCHITIS
     Route: 048
     Dates: start: 20101119, end: 20101211
  3. ALBUTEROL SULFATE [Concomitant]
     Indication: BRONCHITIS
     Route: 055
     Dates: start: 20101119, end: 20101123

REACTIONS (5)
  - ANXIETY [None]
  - MOANING [None]
  - CRYING [None]
  - MIDDLE INSOMNIA [None]
  - OFF LABEL USE [None]
